FAERS Safety Report 4287912-7 (Version None)
Quarter: 2004Q1

REPORT INFORMATION
  Report Type: 
  Country: None (occurrence: None)
  Receive Date: 20040209
  Receipt Date: 20031028
  Transmission Date: 20041129
  Serious: No
  Sender: FDA-Public Use
  Company Number: US-GLAXOSMITHKLINE-A0431931A

PATIENT
  Age: 69 Year
  Sex: Male
  Weight: 105.5 kg

DRUGS (6)
  1. PAXIL [Suspect]
     Dosage: 12.5MG PER DAY
     Route: 048
     Dates: start: 20030801
  2. ATENOLOL [Concomitant]
     Dosage: 50MG UNKNOWN
     Route: 048
     Dates: start: 19980101
  3. ALPRAZOLAM [Concomitant]
     Dosage: .5MG UNKNOWN
     Dates: start: 20020101
  4. TRION [Concomitant]
     Route: 065
     Dates: start: 19990101
  5. FLOMAX [Concomitant]
     Dates: start: 20000101
  6. RHINOCORT [Concomitant]
     Route: 045
     Dates: start: 20000101

REACTIONS (1)
  - PARAESTHESIA [None]
